FAERS Safety Report 17010684 (Version 1)
Quarter: 2019Q4

REPORT INFORMATION
  Report Type: Spontaneous
  Country: US (occurrence: US)
  Receive Date: 20191107
  Receipt Date: 20191107
  Transmission Date: 20200122
  Serious: Yes (Death)
  Sender: FDA-Public Use
  Company Number: None

PATIENT
  Age: 56 Year
  Sex: Male

DRUGS (1)
  1. BUSULFAN. [Suspect]
     Active Substance: BUSULFAN
     Dosage: ?          OTHER FREQUENCY:ONE TIME DOSE;?
     Route: 042

REACTIONS (2)
  - Hypercapnia [None]
  - Hypoxia [None]

NARRATIVE: CASE EVENT DATE: 20190312
